FAERS Safety Report 7521015-0 (Version None)
Quarter: 2011Q2

REPORT INFORMATION
  Report Type: 
  Country: None (occurrence: None)
  Receive Date: 20110603
  Receipt Date: 20101115
  Transmission Date: 20111010
  Serious: No
  Sender: FDA-Public Use
  Company Number: US-BAYER-2010-002244

PATIENT
  Age: 52 Year
  Sex: Male

DRUGS (1)
  1. ULTRAVIST 150 [Suspect]
     Indication: COMPUTERISED TOMOGRAM
     Dosage: 100 ML, UNK
     Dates: start: 20101109, end: 20101109

REACTIONS (2)
  - THROAT TIGHTNESS [None]
  - CHEST DISCOMFORT [None]
